FAERS Safety Report 8954592 (Version 1)
Quarter: 2012Q4

REPORT INFORMATION
  Report Type: Spontaneous
  Country: FR (occurrence: None)
  Receive Date: 20121130
  Receipt Date: 20121130
  Transmission Date: 20130627
  Serious: Yes (Hospitalization)
  Sender: FDA-Public Use
  Company Number: FK-2012-3867

PATIENT
  Age: 57 Year
  Sex: Female

DRUGS (2)
  1. NAVELBINE [Suspect]
     Indication: HER-2 POSITIVE BREAST CANCER
     Dosage: UNK
     Dates: start: 20120816, end: 20121018
  2. AFATINIB [Suspect]
     Indication: HER-2 POSITIVE BREAST CANCER
     Dosage: UNK
     Dates: start: 20120817

REACTIONS (1)
  - Asthenia [None]
